FAERS Safety Report 5976239-0 (Version None)
Quarter: 2008Q4

REPORT INFORMATION
  Report Type: 
  Country: None (occurrence: None)
  Receive Date: 20081202
  Receipt Date: 20081121
  Transmission Date: 20090506
  Serious: Yes (Other)
  Sender: FDA-Public Use
  Company Number: SE-ROCHE-598625

PATIENT
  Age: 46 Year
  Sex: Female
  Weight: 55 kg

DRUGS (2)
  1. ROACCUTAN [Suspect]
     Indication: ACNE
     Dosage: STOP DATE: 2008
     Route: 065
     Dates: start: 20080821
  2. ROACCUTAN [Suspect]
     Dosage: DOSAGE INCREASED
     Route: 065
     Dates: start: 20080101, end: 20081101

REACTIONS (1)
  - SARCOIDOSIS [None]
